FAERS Safety Report 9838453 (Version 3)
Quarter: 2014Q4

REPORT INFORMATION
  Report Type: Report from Study
  Country: FR (occurrence: FR)
  Receive Date: 20140123
  Receipt Date: 20141202
  Transmission Date: 20150529
  Serious: Yes (Death)
  Sender: FDA-Public Use
  Company Number: FR-SA-2014SA006061

PATIENT
  Age: 57 Year
  Sex: Male

DRUGS (3)
  1. AMIKLIN [Concomitant]
     Active Substance: AMIKACIN SULFATE
  2. CAMPATH [Suspect]
     Active Substance: ALEMTUZUMAB
     Indication: CHRONIC LYMPHOCYTIC LEUKAEMIA
     Route: 065
     Dates: start: 20130722, end: 20130913
  3. TIENAM [Concomitant]
     Active Substance: CILASTATIN SODIUM\IMIPENEM

REACTIONS (5)
  - Respiratory distress [Fatal]
  - Pyrexia [Fatal]
  - Histiocytosis haematophagic [Fatal]
  - Aplasia [Fatal]
  - Septic shock [Fatal]

NARRATIVE: CASE EVENT DATE: 2013
